FAERS Safety Report 4620426-0 (Version None)
Quarter: 2005Q1

REPORT INFORMATION
  Report Type: 
  Country: None (occurrence: None)
  Receive Date: 20050321
  Receipt Date: 20050321
  Transmission Date: 20050727
  Serious: No
  Sender: FDA-Public Use
  Company Number: None

PATIENT
  Age: 54 Year
  Sex: Male

DRUGS (1)
  1. TAXOL [Suspect]

REACTIONS (4)
  - BLOOD PRESSURE DECREASED [None]
  - DEVICE FAILURE [None]
  - ELECTROCARDIOGRAM ST SEGMENT ELEVATION [None]
  - PAIN [None]
